FAERS Safety Report 5045341-2 (Version None)
Quarter: 2006Q3

REPORT INFORMATION
  Report Type: 
  Country: None (occurrence: None)
  Receive Date: 20060707
  Receipt Date: 20060131
  Transmission Date: 20061208
  Serious: No
  Sender: FDA-Public Use
  Company Number: US-GLAXOSMITHKLINE-A0591982A

PATIENT
  Sex: Male

DRUGS (6)
  1. LOTRONEX [Suspect]
     Indication: DRUG USE FOR UNKNOWN INDICATION
     Dates: start: 20001030
  2. DIOVAN [Concomitant]
  3. EFFEXOR XR [Concomitant]
  4. ACTOS [Concomitant]
  5. POTASSIUM CHLORIDE [Concomitant]
  6. PREVACID [Concomitant]

REACTIONS (1)
  - ADVERSE EVENT [None]
